FAERS Safety Report 24126464 (Version 3)
Quarter: 2024Q4

REPORT INFORMATION
  Report Type: Spontaneous
  Country: KR (occurrence: KR)
  Receive Date: 20240723
  Receipt Date: 20241202
  Transmission Date: 20250115
  Serious: Yes (Hospitalization, Other)
  Sender: BRISTOL-MYERS SQUIBB COMPANY
  Company Number: KR-BRISTOL-MYERS SQUIBB COMPANY-2024-116454

PATIENT
  Age: 66 Year
  Sex: Female
  Weight: 65 kg

DRUGS (23)
  1. ELIQUIS [Suspect]
     Active Substance: APIXABAN
     Indication: Atrial fibrillation
     Dates: start: 20210519
  2. FOLIC ACID [Concomitant]
     Active Substance: FOLIC ACID
     Indication: Anaemia prophylaxis
     Dates: start: 20210514
  3. AMIODARONE HYDROCHLORIDE [Concomitant]
     Active Substance: AMIODARONE HYDROCHLORIDE
     Indication: Hypertension
     Dates: start: 20210519
  4. CISPLATIN [Concomitant]
     Active Substance: CISPLATIN
     Indication: Non-small cell lung cancer
     Dates: start: 20210514, end: 20210719
  5. CISPLATIN [Concomitant]
     Active Substance: CISPLATIN
     Dates: start: 20210514, end: 20210719
  6. CISPLATIN [Concomitant]
     Active Substance: CISPLATIN
     Dates: start: 20210604, end: 20210604
  7. CISPLATIN [Concomitant]
     Active Substance: CISPLATIN
     Dates: start: 20210514, end: 20210514
  8. CISPLATIN [Concomitant]
     Active Substance: CISPLATIN
     Dates: start: 20210719, end: 20210719
  9. CISPLATIN [Concomitant]
     Active Substance: CISPLATIN
     Dates: start: 20210625, end: 20210625
  10. PEMETREXED [Concomitant]
     Active Substance: PEMETREXED
     Indication: Non-small cell lung cancer
     Dates: start: 20210514, end: 20210719
  11. PEMETREXED [Concomitant]
     Active Substance: PEMETREXED
     Dates: start: 20210819, end: 20210819
  12. PEMETREXED [Concomitant]
     Active Substance: PEMETREXED
     Dates: start: 20210819, end: 20210819
  13. PEMETREXED [Concomitant]
     Active Substance: PEMETREXED
     Dates: start: 20210514, end: 20210514
  14. PEMETREXED [Concomitant]
     Active Substance: PEMETREXED
     Dates: start: 20210625, end: 20210625
  15. PEMETREXED [Concomitant]
     Active Substance: PEMETREXED
     Dates: start: 20210604, end: 20210604
  16. PEMETREXED [Concomitant]
     Active Substance: PEMETREXED
     Dates: start: 20210719, end: 20210719
  17. RABEPRAZOLE SODIUM [Concomitant]
     Active Substance: RABEPRAZOLE SODIUM
     Indication: Gastritis prophylaxis
     Dates: start: 20210601
  18. CALCIUM CARBONATE [Concomitant]
     Active Substance: CALCIUM CARBONATE
     Indication: Osteoporosis prophylaxis
     Dates: start: 20210615
  19. GLUTATHIONE REDUCED [Concomitant]
     Indication: Chemotherapy side effect prophylaxis
     Dates: start: 20210514, end: 20210719
  20. LEVOCLOPERASTINE FENDIZOATE [Concomitant]
     Active Substance: LEVOCLOPERASTINE FENDIZOATE
     Indication: Lung neoplasm malignant
     Dates: start: 20210429, end: 20210614
  21. THEOBROMINE [Concomitant]
     Active Substance: THEOBROMINE
     Indication: Lung neoplasm malignant
     Dates: start: 20210514
  22. FERROUS SULFATE [Concomitant]
     Active Substance: FERROUS SULFATE
     Indication: Anaemia prophylaxis
     Dates: start: 20210514
  23. CHOLECALCIFEROL [Concomitant]
     Active Substance: CHOLECALCIFEROL
     Indication: Osteoporosis prophylaxis
     Dosage: CONCENTRATE POWDER
     Dates: start: 20210615

REACTIONS (2)
  - Pneumonia [Recovered/Resolved]
  - Neuropathy peripheral [Recovering/Resolving]

NARRATIVE: CASE EVENT DATE: 20210622
